FAERS Safety Report 17641522 (Version 2)
Quarter: 2020Q2

REPORT INFORMATION
  Report Type: Spontaneous
  Country: SE (occurrence: SE)
  Receive Date: 20200407
  Receipt Date: 20200417
  Transmission Date: 20200713
  Serious: Yes (Life-Threatening, Hospitalization)
  Sender: FDA-Public Use
  Company Number: SE-ELI_LILLY_AND_COMPANY-SE202004001083

PATIENT
  Age: 58 Year
  Sex: Female

DRUGS (6)
  1. GLUCAGON. [Suspect]
     Active Substance: GLUCAGON
     Indication: CARDIAC DYSFUNCTION
     Dosage: UNK UNK, UNKNOWN
     Route: 065
  2. AMLODIPINE [Suspect]
     Active Substance: AMLODIPINE BESYLATE
     Indication: INTENTIONAL OVERDOSE
     Dosage: UNK UNK, UNKNOWN
     Route: 048
  3. GLUCOSE [Concomitant]
     Active Substance: DEXTROSE
     Indication: DIABETES MELLITUS MANAGEMENT
     Dosage: UNK UNK, UNKNOWN
     Route: 050
  4. BISOPROLOL [Suspect]
     Active Substance: BISOPROLOL
     Indication: INTENTIONAL OVERDOSE
     Dosage: UNK UNK, UNKNOWN
     Route: 048
  5. MIRTAZAPINE. [Suspect]
     Active Substance: MIRTAZAPINE
     Indication: PRODUCT USED FOR UNKNOWN INDICATION
     Dosage: UNK UNK, UNKNOWN
     Route: 065
  6. CITALOPRAM [Suspect]
     Active Substance: CITALOPRAM HYDROBROMIDE
     Indication: PRODUCT USED FOR UNKNOWN INDICATION
     Dosage: UNK UNK, UNKNOWN
     Route: 065

REACTIONS (5)
  - Toxicity to various agents [Unknown]
  - Cardiac dysfunction [Recovered/Resolved]
  - Off label use [Unknown]
  - Non-cardiogenic pulmonary oedema [Recovered/Resolved]
  - Respiratory failure [Recovered/Resolved]
